FAERS Safety Report 5403808-9 (Version None)
Quarter: 2007Q3

REPORT INFORMATION
  Report Type: 
  Country: None (occurrence: None)
  Receive Date: 20070706
  Receipt Date: 20060906
  Transmission Date: 20080115
  Serious: Yes (Other)
  Sender: FDA-Public Use
  Company Number: 462503

PATIENT
  Age: 61 Year
  Sex: Male
  Weight: 79.4 kg

DRUGS (5)
  1. CELLCEPT [Suspect]
     Indication: DRUG USE FOR UNKNOWN INDICATION
     Dates: start: 20030615
  2. RITUXIMAB (RITUXIMAB) [Suspect]
     Indication: DRUG USE FOR UNKNOWN INDICATION
     Dates: start: 20050815, end: 20060315
  3. NOVANTRONE [Suspect]
     Indication: MULTIPLE SCLEROSIS
     Dosage: 12 MG/M2 1 PER 3 MONTH INTRAVENOUS
     Route: 042
     Dates: start: 20021021, end: 20031003
  4. SOLU-MEDROL [Suspect]
     Indication: DRUG USE FOR UNKNOWN INDICATION
     Dosage: 1 PER MONTH INTRAVENOUS
     Route: 042
  5. REBIF [Suspect]
     Indication: DRUG USE FOR UNKNOWN INDICATION

REACTIONS (1)
  - PANCREATIC CARCINOMA [None]
